FAERS Safety Report 9314671 (Version 2)
Quarter: 2013Q2

REPORT INFORMATION
  Report Type: Spontaneous
  Country: CA (occurrence: CA)
  Receive Date: 20130529
  Receipt Date: 20130607
  Transmission Date: 20140414
  Serious: Yes (Other)
  Sender: FDA-Public Use
  Company Number: CA-BAYER-2013-063402

PATIENT
  Age: 73 Year
  Sex: Female

DRUGS (5)
  1. ADALAT XL [Suspect]
     Dosage: UNK
     Dates: start: 201203
  2. METOPROLOL [Suspect]
  3. ASPIRIN [Suspect]
  4. INDAPAMIDE [Concomitant]
  5. VITAMIN C [Concomitant]

REACTIONS (8)
  - Blood pressure increased [None]
  - Dyspnoea [None]
  - Coronary arterial stent insertion [None]
  - Heart rate irregular [None]
  - Rash [None]
  - Constipation [None]
  - Sensation of heaviness [None]
  - Drug interaction [None]
